FAERS Safety Report 12639092 (Version 1)
Quarter: 2016Q3

REPORT INFORMATION
  Report Type: Spontaneous
  Country: FR (occurrence: FR)
  Receive Date: 20160809
  Receipt Date: 20160809
  Transmission Date: 20161109
  Serious: Yes (Hospitalization)
  Sender: FDA-Public Use
  Company Number: FR-BAXTER-2016BAX040881

PATIENT
  Age: 66 Year
  Sex: Female

DRUGS (8)
  1. FLUOROURACIL. [Suspect]
     Active Substance: FLUOROURACIL
     Dosage: IST CYCLE
     Route: 042
     Dates: start: 20160616, end: 20160616
  2. FARMORUBICINE [Suspect]
     Active Substance: EPIRUBICIN HYDROCHLORIDE
     Dosage: IST CYCLE
     Route: 042
     Dates: start: 20160616, end: 20160616
  3. AFINITOR [Suspect]
     Active Substance: EVEROLIMUS
     Indication: BREAST CANCER METASTATIC
     Route: 065
     Dates: start: 201602, end: 201605
  4. AROMASINE [Suspect]
     Active Substance: EXEMESTANE
     Indication: BREAST CANCER METASTATIC
     Route: 065
     Dates: start: 201602, end: 201605
  5. ENDOXAN 1000 MG, POUDRE POUR SOLUTION INJECTABLE [Suspect]
     Active Substance: CYCLOPHOSPHAMIDE
     Indication: BREAST CANCER METASTATIC
     Dosage: IST CYCLE
     Route: 042
     Dates: start: 20160526
  6. FARMORUBICINE [Suspect]
     Active Substance: EPIRUBICIN HYDROCHLORIDE
     Indication: BREAST CANCER METASTATIC
     Dosage: IST CYCLE
     Route: 042
     Dates: start: 20160526
  7. ENDOXAN 1000 MG, POUDRE POUR SOLUTION INJECTABLE [Suspect]
     Active Substance: CYCLOPHOSPHAMIDE
     Dosage: IST CYCLE
     Route: 042
     Dates: start: 20160616, end: 20160616
  8. FLUOROURACIL. [Suspect]
     Active Substance: FLUOROURACIL
     Indication: BREAST CANCER METASTATIC
     Dosage: IST CYCLE
     Route: 042
     Dates: start: 20160526

REACTIONS (2)
  - Myocardial ischaemia [Recovered/Resolved]
  - Ischaemic stroke [Recovering/Resolving]

NARRATIVE: CASE EVENT DATE: 20160619
